FAERS Safety Report 17416389 (Version 1)
Quarter: 2020Q1

REPORT INFORMATION
  Report Type: Spontaneous
  Country: AU (occurrence: AU)
  Receive Date: 20200213
  Receipt Date: 20200213
  Transmission Date: 20200409
  Serious: Yes (Other)
  Sender: FDA-Public Use
  Company Number: AU-REGENERON PHARMACEUTICALS, INC.-2020-18812

PATIENT

DRUGS (1)
  1. EYLEA [Suspect]
     Active Substance: AFLIBERCEPT
     Indication: DIABETIC RETINAL OEDEMA
     Dosage: UNKNOWN TOTAL INJECTIONS RECEIVED
     Route: 031
     Dates: start: 20191219

REACTIONS (2)
  - Fall [Unknown]
  - Blindness [Unknown]

NARRATIVE: CASE EVENT DATE: 201912
